FAERS Safety Report 12818520 (Version 1)
Quarter: 2016Q4

REPORT INFORMATION
  Report Type: Spontaneous
  Country: US (occurrence: US)
  Receive Date: 20161005
  Receipt Date: 20161005
  Transmission Date: 20170207
  Serious: Yes (Hospitalization)
  Sender: FDA-Public Use
  Company Number: None

PATIENT
  Age: 67 Year
  Sex: Female

DRUGS (16)
  1. NOVOLOG [Concomitant]
     Active Substance: INSULIN ASPART
  2. VITAMIN D3 [Concomitant]
     Active Substance: CHOLECALCIFEROL
  3. REVLIMID [Concomitant]
     Active Substance: LENALIDOMIDE
  4. METFOMIN [Concomitant]
     Active Substance: METFORMIN HYDROCHLORIDE
  5. CALCIUM [Concomitant]
     Active Substance: CALCIUM
  6. LASIX [Concomitant]
     Active Substance: FUROSEMIDE
  7. ZOLEDRONIC ACID 4MG/5ML SDV PAR STERILE [Suspect]
     Active Substance: ZOLEDRONIC ACID
     Indication: PLASMA CELL MYELOMA
     Dates: start: 201507
  8. CRANBERRY. [Concomitant]
     Active Substance: CRANBERRY
  9. MELATONIN [Concomitant]
     Active Substance: MELATONIN
  10. FISH OIL [Concomitant]
     Active Substance: FISH OIL
  11. LEVOTHROID [Concomitant]
     Active Substance: LEVOTHYROXINE SODIUM
  12. TYLENOL [Concomitant]
     Active Substance: ACETAMINOPHEN
  13. PRENATAL [Concomitant]
     Active Substance: VITAMINS
  14. LOVASTATIN. [Concomitant]
     Active Substance: LOVASTATIN
  15. APRININ [Concomitant]
  16. POTASSIUM [Concomitant]
     Active Substance: POTASSIUM

REACTIONS (1)
  - Pneumonia [None]

NARRATIVE: CASE EVENT DATE: 201610
